FAERS Safety Report 18133799 (Version 2)
Quarter: 2020Q4

REPORT INFORMATION
  Report Type: Spontaneous
  Country: JP (occurrence: JP)
  Receive Date: 20200811
  Receipt Date: 20201028
  Transmission Date: 20210113
  Serious: Yes (Hospitalization, Other)
  Sender: FDA-Public Use
  Company Number: JP-ELI_LILLY_AND_COMPANY-JP202001009381

PATIENT
  Age: 81 Year
  Sex: Female
  Weight: 62 kg

DRUGS (6)
  1. SPIRONOLACTONE. [Concomitant]
     Active Substance: SPIRONOLACTONE
     Indication: ASCITES
  2. LIVACT [AMINO ACIDS NOS] [Concomitant]
     Indication: HYPOALBUMINAEMIA
     Dosage: 3 DOSAGE FORM, UNKNOWN
     Route: 065
     Dates: end: 20200226
  3. SAMSCA [Suspect]
     Active Substance: TOLVAPTAN
     Indication: ASCITES
     Dosage: UNK, UNKNOWN
     Route: 065
     Dates: start: 20191111, end: 20191115
  4. SPIRONOLACTONE. [Concomitant]
     Active Substance: SPIRONOLACTONE
     Indication: OEDEMA
     Dosage: 50 MG, UNKNOWN
     Route: 065
     Dates: start: 20181227, end: 20200226
  5. CYRAMZA [Suspect]
     Active Substance: RAMUCIRUMAB
     Indication: HEPATOCELLULAR CARCINOMA
     Dosage: 6 MG/KG, UNKNOWN
     Route: 042
     Dates: start: 20190822, end: 20191003
  6. AMLODIPINE [Concomitant]
     Active Substance: AMLODIPINE BESYLATE
     Indication: HYPERTENSION
     Dosage: 5 MG, UNKNOWN
     Route: 065
     Dates: end: 20200226

REACTIONS (2)
  - Ascites [Not Recovered/Not Resolved]
  - Cerebral infarction [Unknown]

NARRATIVE: CASE EVENT DATE: 20191017
